FAERS Safety Report 8911324 (Version 2)
Quarter: 2013Q4

REPORT INFORMATION
  Report Type: Spontaneous
  Country: US (occurrence: US)
  Receive Date: 20121116
  Receipt Date: 20131217
  Transmission Date: 20140711
  Serious: Yes (Life-Threatening, Hospitalization, Disabling, Other)
  Sender: FDA-Public Use
  Company Number: US-GLAXOSMITHKLINE-A0997171A

PATIENT
  Age: 44 Year
  Sex: Male
  Weight: 92.5 kg

DRUGS (10)
  1. VOTRIENT [Suspect]
     Indication: SARCOMA
     Route: 048
     Dates: start: 20120613, end: 20120630
  2. BACLOFEN [Concomitant]
     Dosage: 10MG TWICE PER DAY
     Route: 048
  3. DOCUSATE [Concomitant]
     Dosage: 100MG THREE TIMES PER DAY
     Route: 048
  4. HYDROMORPHONE [Concomitant]
     Indication: PAIN
     Dosage: 4MG AS REQUIRED
     Route: 048
  5. POTASSIUM PHOSPHATE [Concomitant]
     Dosage: 1TAB TWICE PER DAY
     Route: 048
  6. ONDANSETRON [Concomitant]
     Indication: NAUSEA
     Dosage: 8MG AS REQUIRED
     Route: 048
  7. OXYCODONE [Concomitant]
     Indication: PAIN
     Dosage: 5MG AS REQUIRED
     Route: 048
  8. PANTOPRAZOLE [Concomitant]
     Dosage: 40MG TWICE PER DAY
     Route: 048
  9. POTASSIUM [Concomitant]
     Indication: HYPOKALAEMIA
     Dosage: 30MEQ FOUR TIMES PER DAY
     Route: 048
  10. SENNA [Concomitant]
     Indication: CONSTIPATION
     Dosage: 1TAB AS REQUIRED
     Route: 048

REACTIONS (4)
  - Haemorrhage intracranial [Recovering/Resolving]
  - Headache [Unknown]
  - Hypertension [Unknown]
  - Cerebral haemorrhage [Unknown]
